FAERS Safety Report 18858403 (Version 2)
Quarter: 2021Q1

REPORT INFORMATION
  Report Type: Spontaneous
  Country: IN (occurrence: IN)
  Receive Date: 20210208
  Receipt Date: 20210326
  Transmission Date: 20210420
  Serious: Yes (Life-Threatening, Hospitalization, Other)
  Sender: FDA-Public Use
  Company Number: IN-PURACAP-IN-2021EPCLIT00085

PATIENT
  Age: 72 Year
  Sex: Female

DRUGS (3)
  1. ERGOCALCIFEROL. [Suspect]
     Active Substance: ERGOCALCIFEROL
     Indication: OSTEOPOROSIS
     Route: 065
  2. NORMAL SALINE [Interacting]
     Active Substance: SODIUM CHLORIDE
     Indication: HYPERVITAMINOSIS
     Route: 042
  3. CALCIUM [Concomitant]
     Active Substance: CALCIUM
     Indication: OSTEOPOROSIS
     Route: 065

REACTIONS (8)
  - Vomiting [Unknown]
  - Depressed level of consciousness [Recovering/Resolving]
  - Hypercalcaemia [Recovering/Resolving]
  - Hypervitaminosis [Unknown]
  - Pollakiuria [Unknown]
  - Tremor [Unknown]
  - Product use in unapproved indication [Unknown]
  - Confusional state [Unknown]
